FAERS Safety Report 8483874-7 (Version None)
Quarter: 2012Q2

REPORT INFORMATION
  Report Type: 
  Country: None (occurrence: None)
  Receive Date: 20120627
  Receipt Date: 20120627
  Transmission Date: 20120825
  Serious: Yes (Other)
  Sender: FDA-Public Use
  Company Number: None

PATIENT
  Age: 48 Year
  Sex: Male
  Weight: 119.4003 kg

DRUGS (1)
  1. IMMUNE GLOBULIN (HUMAN) [Suspect]
     Indication: BLOOD IMMUNOGLOBULIN G DECREASED
     Dosage: 60GM ONE TIME IV DRIP
     Route: 041
     Dates: start: 20120612, end: 20120612

REACTIONS (1)
  - FALSE POSITIVE INVESTIGATION RESULT [None]
